FAERS Safety Report 9747174 (Version 2)
Quarter: 2014Q1

REPORT INFORMATION
  Report Type: Spontaneous
  Country: FR (occurrence: FR)
  Receive Date: 20131211
  Receipt Date: 20140128
  Transmission Date: 20141002
  Serious: Yes (Other)
  Sender: FDA-Public Use
  Company Number: FR-ROCHE-1317138

PATIENT
  Age: 70 Year
  Sex: Male

DRUGS (2)
  1. XOLAIR [Suspect]
     Indication: ASTHMA
     Route: 058
     Dates: start: 201307
  2. SINGULAIR [Concomitant]

REACTIONS (4)
  - Eosinophilia [Not Recovered/Not Resolved]
  - Arthralgia [Not Recovered/Not Resolved]
  - Allergic granulomatous angiitis [Unknown]
  - Purpura [Unknown]
